FAERS Safety Report 8342277 (Version 3)
Quarter: 2013Q2

REPORT INFORMATION
  Report Type: Spontaneous
  Country: US (occurrence: US)
  Receive Date: 20120118
  Receipt Date: 20130626
  Transmission Date: 20140414
  Serious: Yes (Life-Threatening, Hospitalization, Other)
  Sender: FDA-Public Use
  Company Number: US-PFIZER INC-2012012949

PATIENT
  Age: 49 Year
  Sex: Male

DRUGS (3)
  1. AMLODIPINE BESILATE [Suspect]
     Dosage: 600 MG, UNK
     Route: 048
  2. CLONAZEPAM [Suspect]
     Dosage: 60 MG, UNK
     Route: 065
  3. TRAMADOL [Suspect]
     Dosage: 500 MG, UNK
     Route: 065

REACTIONS (5)
  - Overdose [Unknown]
  - Non-cardiogenic pulmonary oedema [Unknown]
  - Suicide attempt [Unknown]
  - Hypotension [Unknown]
  - Renal failure acute [Recovering/Resolving]
